FAERS Safety Report 16801608 (Version 5)
Quarter: 2022Q3

REPORT INFORMATION
  Report Type: Report from Study
  Country: JP (occurrence: JP)
  Receive Date: 20190912
  Receipt Date: 20220825
  Transmission Date: 20221027
  Serious: Yes (Hospitalization)
  Sender: FDA-Public Use
  Company Number: JP-BIOGEN-2019BI00686972

PATIENT
  Age: 6 Year
  Sex: Female

DRUGS (14)
  1. SPINRAZA [Interacting]
     Active Substance: NUSINERSEN
     Indication: Spinal muscular atrophy
     Route: 050
     Dates: start: 20180509, end: 20180509
  2. SPINRAZA [Interacting]
     Active Substance: NUSINERSEN
     Route: 050
     Dates: start: 20180606, end: 20180606
  3. SPINRAZA [Interacting]
     Active Substance: NUSINERSEN
     Route: 050
     Dates: start: 20180808, end: 20180808
  4. SPINRAZA [Interacting]
     Active Substance: NUSINERSEN
     Route: 050
     Dates: start: 20190130, end: 20190130
  5. SPINRAZA [Interacting]
     Active Substance: NUSINERSEN
     Route: 050
     Dates: start: 20190731, end: 20190731
  6. SPINRAZA [Interacting]
     Active Substance: NUSINERSEN
     Route: 050
     Dates: start: 20200205
  7. SPINRAZA [Interacting]
     Active Substance: NUSINERSEN
     Route: 050
     Dates: start: 20201007, end: 20201007
  8. SPINRAZA [Interacting]
     Active Substance: NUSINERSEN
     Route: 050
     Dates: start: 20210407
  9. MIDAZOLAM [Interacting]
     Active Substance: MIDAZOLAM
     Indication: Anaesthesia procedure
     Route: 050
     Dates: start: 20180509, end: 20180509
  10. MIDAZOLAM [Interacting]
     Active Substance: MIDAZOLAM
     Route: 050
     Dates: start: 20180606, end: 20180606
  11. MIDAZOLAM [Interacting]
     Active Substance: MIDAZOLAM
     Route: 050
     Dates: start: 20180808, end: 20180808
  12. MIDAZOLAM [Interacting]
     Active Substance: MIDAZOLAM
     Route: 050
     Dates: start: 20190130, end: 20190130
  13. MIDAZOLAM [Interacting]
     Active Substance: MIDAZOLAM
     Route: 050
     Dates: start: 20190731, end: 20190731
  14. MIDAZOLAM [Interacting]
     Active Substance: MIDAZOLAM
     Route: 050
     Dates: start: 20200205

REACTIONS (4)
  - Pneumonia aspiration [Recovered/Resolved]
  - Pyrexia [Recovered/Resolved]
  - Drug interaction [Unknown]
  - Prescribed underdose [Unknown]

NARRATIVE: CASE EVENT DATE: 20180607
